FAERS Safety Report 9434251 (Version 1)
Quarter: 2013Q3

REPORT INFORMATION
  Report Type: Spontaneous
  Country: US (occurrence: US)
  Receive Date: 20130801
  Receipt Date: 20130801
  Transmission Date: 20140515
  Serious: Yes (Other)
  Sender: FDA-Public Use
  Company Number: PHEH2013US015851

PATIENT
  Sex: Male

DRUGS (6)
  1. DIOVAN [Suspect]
     Dosage: 160 MG, UNK
  2. LANTUS [Concomitant]
     Dosage: UNK UKN, UNK
  3. TESTOSTERONE ISOCAPROATE [Concomitant]
     Dosage: UNK UKN, UNK
  4. METOPROLOL [Concomitant]
     Dosage: UNK UKN, UNK
  5. NEXIUM//ESOMEPRAZOLE MAGNESIUM [Concomitant]
     Dosage: UNK UKN, UNK
  6. NITROGLYCERINE [Concomitant]
     Dosage: UNK UKN, UNK

REACTIONS (9)
  - Arteriosclerosis [Unknown]
  - Nephropathy [Unknown]
  - Diabetes mellitus [Unknown]
  - Renal impairment [Unknown]
  - Myocardial infarction [Unknown]
  - Prostate cancer [Unknown]
  - Vitamin D decreased [Unknown]
  - Blood glucose fluctuation [Unknown]
  - Feeling abnormal [Unknown]
